FAERS Safety Report 21948962 (Version 2)
Quarter: 2023Q1

REPORT INFORMATION
  Report Type: Report from Study
  Country: AR (occurrence: AR)
  Receive Date: 20230203
  Receipt Date: 20230316
  Transmission Date: 20230418
  Serious: Yes (Death, Other)
  Sender: FDA-Public Use
  Company Number: AR-002147023-NVSC2023AR021746

PATIENT
  Age: 72 Year
  Sex: Female

DRUGS (1)
  1. KISQALI [Suspect]
     Active Substance: RIBOCICLIB
     Indication: Breast cancer metastatic
     Dosage: 600 MG, QD
     Route: 048
     Dates: start: 20220923

REACTIONS (3)
  - Death [Fatal]
  - Hepatitis [Unknown]
  - Hepatic pain [Unknown]

NARRATIVE: CASE EVENT DATE: 20221115
